FAERS Safety Report 8198756-8 (Version None)
Quarter: 2012Q1

REPORT INFORMATION
  Report Type: 
  Country: None (occurrence: None)
  Receive Date: 20120309
  Receipt Date: 20120210
  Transmission Date: 20120608
  Serious: No
  Sender: FDA-Public Use
  Company Number: US-AMGEN-USASP2011012636

PATIENT
  Age: 83 Year
  Sex: Female

DRUGS (7)
  1. ADVAIR DISKUS 100/50 [Concomitant]
  2. GLEEVEC [Concomitant]
  3. PROLIA [Suspect]
     Indication: OSTEOPOROSIS POSTMENOPAUSAL
     Dosage: 60 MG, Q6MO
     Dates: start: 20110303
  4. METOPROLOL SUCCINATE [Concomitant]
  5. SIMVASTATIN [Concomitant]
  6. LEVOTHYROXINE SODIUM [Concomitant]
  7. FUROSEMIDE [Concomitant]

REACTIONS (2)
  - RHINORRHOEA [None]
  - OROPHARYNGEAL PAIN [None]
